FAERS Safety Report 17749816 (Version 1)
Quarter: 2020Q2

REPORT INFORMATION
  Report Type: Spontaneous
  Country: IT (occurrence: IT)
  Receive Date: 20200506
  Receipt Date: 20200506
  Transmission Date: 20200714
  Serious: Yes (Hospitalization)
  Sender: FDA-Public Use
  Company Number: IT-ACCORD-180978

PATIENT
  Age: 44 Year
  Sex: Female

DRUGS (2)
  1. MYCOPHENOLATE MOFETIL ACCORD [Suspect]
     Active Substance: MYCOPHENOLATE MOFETIL
     Indication: MYASTHENIA GRAVIS
     Route: 048
     Dates: start: 20191009, end: 20200124
  2. MESTINON [Concomitant]
     Active Substance: PYRIDOSTIGMINE BROMIDE
     Indication: MYASTHENIA GRAVIS
     Dosage: STRENGTH: 60 MG
     Route: 048

REACTIONS (5)
  - Diplopia [Recovering/Resolving]
  - Asthenia [Recovering/Resolving]
  - Therapeutic product ineffective [Unknown]
  - Dysphonia [Recovering/Resolving]
  - Off label use [Unknown]

NARRATIVE: CASE EVENT DATE: 20200124
